FAERS Safety Report 22176923 (Version 4)
Quarter: 2023Q2

REPORT INFORMATION
  Report Type: Report from Study
  Country: ES (occurrence: ES)
  Receive Date: 20230405
  Receipt Date: 20230418
  Transmission Date: 20230722
  Serious: Yes (Hospitalization)
  Sender: FDA-Public Use
  Company Number: ES-002147023-NVSC2023ES072198

PATIENT
  Age: 67 Year
  Sex: Female
  Weight: 64 kg

DRUGS (34)
  1. PIQRAY [Suspect]
     Active Substance: ALPELISIB
     Indication: Ovarian cancer
     Dosage: 200 MG, QD (DAILY)
     Route: 048
     Dates: start: 20221017
  2. OLAPARIB [Suspect]
     Active Substance: OLAPARIB
     Indication: Ovarian cancer
     Dosage: 200 MG, BID
     Route: 048
     Dates: start: 20221017
  3. TELMISARTAN [Concomitant]
     Active Substance: TELMISARTAN
     Indication: Hypertension
     Dosage: UNK
     Route: 065
     Dates: start: 2019
  4. BARNIDIPINE [Concomitant]
     Active Substance: BARNIDIPINE
     Indication: Hypertension
     Dosage: UNK
     Route: 065
     Dates: start: 2020
  5. BARNIDIPINE [Concomitant]
     Active Substance: BARNIDIPINE
     Indication: Hyponatraemia
     Dosage: UNK
     Route: 065
     Dates: start: 20230206, end: 20230206
  6. CYMBALTA [Concomitant]
     Active Substance: DULOXETINE HYDROCHLORIDE
     Indication: Anxiety
     Dosage: UNK
     Route: 065
     Dates: start: 20200101
  7. LORMETAZEPAM [Concomitant]
     Active Substance: LORMETAZEPAM
     Indication: Insomnia
     Dosage: UNK
     Route: 065
     Dates: start: 202006
  8. LORAZEPAM [Concomitant]
     Active Substance: LORAZEPAM
     Indication: Insomnia
     Dosage: UNK
     Route: 065
     Dates: start: 2022
  9. OMEPRAZOLE [Concomitant]
     Active Substance: OMEPRAZOLE
     Indication: Gastrooesophageal reflux disease
     Dosage: UNK
     Route: 065
     Dates: start: 20221024
  10. XEROS [Concomitant]
     Indication: Dry mouth
     Dosage: UNK
     Route: 065
     Dates: start: 20221114
  11. LANTUS [Concomitant]
     Active Substance: INSULIN GLARGINE
     Indication: Hyperglycaemia
     Dosage: UNK
     Route: 065
     Dates: start: 20221121
  12. APIDRA [Concomitant]
     Active Substance: INSULIN GLULISINE
     Indication: Hyperglycaemia
     Dosage: UNK
     Route: 065
     Dates: start: 20221202, end: 20230226
  13. SULPIRIDE [Concomitant]
     Active Substance: SULPIRIDE
     Indication: Dizziness
     Dosage: UNK
     Route: 065
     Dates: start: 20230202
  14. HIBOR [Concomitant]
     Indication: Hyponatraemia
     Dosage: UNK
     Route: 065
     Dates: start: 20230206, end: 20230221
  15. LEVOFLOXACIN [Concomitant]
     Active Substance: LEVOFLOXACIN
     Indication: Hyponatraemia
     Dosage: UNK
     Route: 065
     Dates: start: 20230206, end: 20230206
  16. LOSARTAN [Concomitant]
     Active Substance: LOSARTAN
     Indication: Hyponatraemia
     Dosage: UNK
     Route: 065
     Dates: start: 20230206, end: 20230206
  17. MAGNESIUM [Concomitant]
     Active Substance: MAGNESIUM
     Indication: Hyponatraemia
     Dosage: UNK
     Route: 065
     Dates: start: 20230206, end: 20230207
  18. ACETAMINOPHEN [Concomitant]
     Active Substance: ACETAMINOPHEN
     Indication: Hyponatraemia
     Dosage: UNK
     Route: 065
     Dates: start: 20230206, end: 20230216
  19. PIPERACILLIN SODIUM\TAZOBACTAM SODIUM [Concomitant]
     Active Substance: PIPERACILLIN SODIUM\TAZOBACTAM SODIUM
     Indication: Hyponatraemia
     Dosage: UNK
     Route: 065
     Dates: start: 20230206, end: 20230207
  20. ACETYLCYSTEINE [Concomitant]
     Active Substance: ACETYLCYSTEINE
     Indication: Hyponatraemia
     Dosage: UNK
     Route: 065
     Dates: start: 20230207, end: 20230209
  21. ACETYLCYSTEINE [Concomitant]
     Active Substance: ACETYLCYSTEINE
     Dosage: UNK
     Route: 065
     Dates: start: 20230212, end: 20230214
  22. ACTRAPID [Concomitant]
     Active Substance: INSULIN HUMAN
     Indication: Hyponatraemia
     Dosage: VIAL
     Route: 065
     Dates: start: 20230207, end: 20230207
  23. ASCORBIC ACID [Concomitant]
     Active Substance: ASCORBIC ACID
     Indication: Hyponatraemia
     Dosage: UNK
     Route: 065
     Dates: start: 20230207, end: 20230210
  24. FUROSEMIDE [Concomitant]
     Active Substance: FUROSEMIDE
     Indication: Hyponatraemia
     Dosage: UNK
     Route: 065
     Dates: start: 20230207, end: 20230220
  25. NOREPINEPHRINE [Concomitant]
     Active Substance: NOREPINEPHRINE
     Indication: Hyponatraemia
     Dosage: UNK
     Route: 065
     Dates: start: 20230207, end: 20230210
  26. PANTOPRAZOLE [Concomitant]
     Active Substance: PANTOPRAZOLE
     Indication: Hyponatraemia
     Dosage: UNK
     Route: 065
     Dates: start: 20230207
  27. THIAMINE HYDROCHLORIDE [Concomitant]
     Active Substance: THIAMINE HYDROCHLORIDE
     Indication: Hyponatraemia
     Dosage: UNK
     Route: 065
     Dates: start: 20230207, end: 20230210
  28. VANCOMYCIN [Concomitant]
     Active Substance: VANCOMYCIN
     Indication: Hyponatraemia
     Dosage: UNK
     Route: 065
     Dates: start: 20230207, end: 20230207
  29. CEFTRIAXONE [Concomitant]
     Active Substance: CEFTRIAXONE
     Indication: Hyponatraemia
     Dosage: UNK
     Route: 065
     Dates: start: 20230208, end: 20230209
  30. CLINDAMYCIN [Concomitant]
     Active Substance: CLINDAMYCIN
     Indication: Hyponatraemia
     Dosage: UNK
     Route: 065
     Dates: start: 20230208, end: 20230210
  31. SULFAMETHOXAZOLE\TRIMETHOPRIM [Concomitant]
     Active Substance: SULFAMETHOXAZOLE\TRIMETHOPRIM
     Indication: Hyponatraemia
     Dosage: UNK
     Route: 065
     Dates: start: 20230208, end: 20230213
  32. AMIKACIN [Concomitant]
     Active Substance: AMIKACIN
     Indication: Hyponatraemia
     Dosage: UNK
     Route: 065
     Dates: start: 20230209, end: 20230209
  33. PENILEVEL [Concomitant]
     Indication: Hyponatraemia
     Dosage: UNK
     Route: 065
     Dates: start: 20230210, end: 20230214
  34. MAXIPIME [Concomitant]
     Active Substance: CEFEPIME HYDROCHLORIDE
     Indication: Hyponatraemia
     Dosage: UNK
     Route: 065
     Dates: start: 20230210, end: 20230214

REACTIONS (1)
  - Septic shock [Recovered/Resolved]

NARRATIVE: CASE EVENT DATE: 20230207
